FAERS Safety Report 14455598 (Version 3)
Quarter: 2024Q4

REPORT INFORMATION
  Report Type: Spontaneous
  Country: US (occurrence: US)
  Receive Date: 20180129
  Receipt Date: 20241014
  Transmission Date: 20250115
  Serious: No
  Sender: BAUSCH AND LOMB
  Company Number: US-MLMSERVICE-20180111-1037531-1

PATIENT
  Age: 64 Year
  Sex: Male

DRUGS (2)
  1. CLINDAMYCIN [Suspect]
     Active Substance: CLINDAMYCIN
     Indication: Babesiosis
     Route: 065
  2. QUININE [Suspect]
     Active Substance: QUININE
     Indication: Babesiosis
     Route: 065

REACTIONS (3)
  - Bradycardia [Unknown]
  - Atrioventricular block [Unknown]
  - Electrocardiogram U wave present [Unknown]
